FAERS Safety Report 10565352 (Version 1)
Quarter: 2014Q4

REPORT INFORMATION
  Report Type: Spontaneous
  Country: NO (occurrence: NO)
  Receive Date: 20141105
  Receipt Date: 20141105
  Transmission Date: 20150529
  Serious: Yes (Hospitalization)
  Sender: FDA-Public Use
  Company Number: PHHY2014NO142292

PATIENT
  Age: 59 Year
  Sex: Female

DRUGS (9)
  1. NOZINAN [Suspect]
     Active Substance: LEVOMEPROMAZINE
     Indication: PSYCHOTIC DISORDER
     Dosage: 25 MG, TID
     Route: 048
     Dates: end: 20141013
  2. REMERON [Concomitant]
     Active Substance: MIRTAZAPINE
     Indication: MOOD ALTERED
     Dosage: 30 MG, UNK
     Route: 048
     Dates: start: 201303, end: 20141010
  3. SOBRIL [Concomitant]
     Active Substance: OXAZEPAM
     Indication: ANXIETY
     Dosage: 15 MG, QD
     Route: 048
     Dates: start: 2010
  4. LEPONEX [Suspect]
     Active Substance: CLOZAPINE
     Indication: SCHIZOPHRENIA
     Dosage: 87.5 MG MORNING AND 100 MG EVENING
     Route: 048
     Dates: start: 2010
  5. LEPONEX [Suspect]
     Active Substance: CLOZAPINE
     Dosage: UNK
     Route: 048
     Dates: end: 20141010
  6. RISPERDAL CONSTA [Suspect]
     Active Substance: RISPERIDONE
     Indication: SCHIZOPHRENIA
     Dosage: 37.5 MG, BIW
     Route: 051
     Dates: start: 2009
  7. RISPERDAL CONSTA [Suspect]
     Active Substance: RISPERIDONE
     Dosage: 25 MG, BIW
     Route: 051
     Dates: start: 201304, end: 20141010
  8. ZOPICLONE ACTAVIS [Concomitant]
     Indication: SLEEP DISORDER
     Dosage: 7.5 MG, QD
     Route: 048
     Dates: start: 201408
  9. NYCOPLUS [Concomitant]
     Indication: PRODUCT USED FOR UNKNOWN INDICATION
     Dosage: 20 UG, QD
     Route: 048

REACTIONS (6)
  - Neuroleptic malignant syndrome [Recovering/Resolving]
  - Myoglobin blood increased [Recovering/Resolving]
  - Pyrexia [Recovering/Resolving]
  - Renal failure [Recovering/Resolving]
  - Rhabdomyolysis [Recovering/Resolving]
  - Blood creatine phosphokinase increased [Recovering/Resolving]

NARRATIVE: CASE EVENT DATE: 201410
